FAERS Safety Report 5109964-4 (Version None)
Quarter: 2006Q3

REPORT INFORMATION
  Report Type: 
  Country: None (occurrence: None)
  Receive Date: 20060731
  Receipt Date: 20060403
  Transmission Date: 20061208
  Serious: No
  Sender: FDA-Public Use
  Company Number: 2006PV011443

PATIENT
  Age: 64 Year
  Sex: Female

DRUGS (4)
  1. BYETTA [Suspect]
     Indication: DIABETES MELLITUS NON-INSULIN-DEPENDENT
     Dosage: 5MCG;BID;SC
     Dates: start: 20060328
  2. GLUCOPHAGE [Concomitant]
  3. GLYBURIDE [Concomitant]
  4. AVANDIA [Concomitant]

REACTIONS (2)
  - DECREASED APPETITE [None]
  - NASOPHARYNGITIS [None]
